FAERS Safety Report 9448650 (Version 1)
Quarter: 2013Q3

REPORT INFORMATION
  Report Type: Spontaneous
  Country: US (occurrence: US)
  Receive Date: 20130808
  Receipt Date: 20130808
  Transmission Date: 20140515
  Serious: Yes (Other)
  Sender: FDA-Public Use
  Company Number: US-BAYER-2013-093616

PATIENT
  Age: 40 Year
  Sex: Female
  Weight: 79 kg

DRUGS (6)
  1. ALEVE GELCAPS [Suspect]
     Indication: SWELLING
     Dosage: 3 DF, TID
     Route: 048
     Dates: start: 201109
  2. ALEVE GELCAPS [Suspect]
     Indication: FIBROMYALGIA
  3. VOLTAREN [DICLOFENAC] [Concomitant]
  4. OMEPRAZOLE [Concomitant]
  5. PROZAC [Concomitant]
  6. PHENTERMINE [Concomitant]

REACTIONS (4)
  - Nephrolithiasis [Not Recovered/Not Resolved]
  - Drug dependence [None]
  - Extra dose administered [None]
  - Incorrect drug administration duration [None]
